FAERS Safety Report 8032350-4 (Version None)
Quarter: 2012Q1

REPORT INFORMATION
  Report Type: 
  Country: None (occurrence: None)
  Receive Date: 20120109
  Receipt Date: 20120109
  Transmission Date: 20120608
  Serious: Yes (Hospitalization)
  Sender: FDA-Public Use
  Company Number: None

PATIENT
  Age: 58 Year
  Sex: Male
  Weight: 111.9 kg

DRUGS (1)
  1. ROSUVASTATIN [Suspect]
     Indication: HYPERLIPIDAEMIA
     Dosage: 1/2 TAB EVERY DAY PO
     Route: 048
     Dates: start: 20080509, end: 20110729

REACTIONS (4)
  - SCIATICA [None]
  - RHABDOMYOLYSIS [None]
  - HEADACHE [None]
  - PAIN [None]
